FAERS Safety Report 5662644-9 (Version None)
Quarter: 2008Q1

REPORT INFORMATION
  Report Type: 
  Country: None (occurrence: None)
  Receive Date: 20080310
  Receipt Date: 20080310
  Transmission Date: 20080703
  Serious: Yes (Other)
  Sender: FDA-Public Use
  Company Number: None

PATIENT
  Age: 52 Year
  Sex: Female
  Weight: 49.8957 kg

DRUGS (1)
  1. KETOCONAZOLE [Suspect]
     Dosage: 1/DAY

REACTIONS (2)
  - ABDOMINAL PAIN UPPER [None]
  - HEPATIC ENZYME INCREASED [None]
